FAERS Safety Report 6500153-5 (Version None)
Quarter: 2009Q4

REPORT INFORMATION
  Report Type: 
  Country: None (occurrence: None)
  Receive Date: 20091127
  Receipt Date: 20090610
  Transmission Date: 20100525
  Serious: Yes (Disabling)
  Sender: FDA-Public Use
  Company Number: WAES 0711USA03735

PATIENT
  Age: 69 Year
  Sex: Female
  Weight: 60.782 kg

DRUGS (3)
  1. FOSAMAX [Suspect]
     Indication: OSTEOPOROSIS
     Dosage: UNK/UNK/PO 70 MG/WKY/PO 70 MG/DAILY/PO 35 MG/UNK/PO
     Route: 048
     Dates: start: 20010101, end: 20040201
  2. FOSAMAX [Suspect]
     Indication: OSTEOPOROSIS
     Dosage: UNK/UNK/PO 70 MG/WKY/PO 70 MG/DAILY/PO 35 MG/UNK/PO
     Route: 048
     Dates: start: 20040320, end: 20040423
  3. FOSAMAX [Suspect]
     Indication: OSTEOPOROSIS
     Dosage: UNK/UNK/PO 70 MG/WKY/PO 70 MG/DAILY/PO 35 MG/UNK/PO
     Route: 048
     Dates: start: 20030609

REACTIONS (12)
  - ABDOMINAL DISCOMFORT [None]
  - ADVERSE DRUG REACTION [None]
  - CARDIAC DISORDER [None]
  - GASTRITIS [None]
  - GASTROENTERITIS VIRAL [None]
  - INAPPROPRIATE SCHEDULE OF DRUG ADMINISTRATION [None]
  - OSTEOMYELITIS [None]
  - OSTEONECROSIS [None]
  - OVERDOSE [None]
  - RESORPTION BONE INCREASED [None]
  - TOOTH LOSS [None]
  - URTICARIA [None]
